FAERS Safety Report 6658670-3 (Version None)
Quarter: 2010Q1

REPORT INFORMATION
  Report Type: 
  Country: None (occurrence: None)
  Receive Date: 20100330
  Receipt Date: 20100318
  Transmission Date: 20100710
  Serious: Yes (Hospitalization)
  Sender: FDA-Public Use
  Company Number: PHEH2010US03196

PATIENT
  Sex: Male
  Weight: 72.57 kg

DRUGS (1)
  1. EXJADE [Suspect]
     Indication: MYELODYSPLASTIC SYNDROME
     Dosage: 500/250MG, DAILY
     Route: 048
     Dates: start: 20080109, end: 20100219

REACTIONS (2)
  - FUNGAL INFECTION [None]
  - HAEMORRHAGE [None]
